FAERS Safety Report 6031104-8 (Version None)
Quarter: 2009Q1

REPORT INFORMATION
  Report Type: 
  Country: None (occurrence: None)
  Receive Date: 20090108
  Receipt Date: 20081225
  Transmission Date: 20090719
  Serious: Yes (Other)
  Sender: FDA-Public Use
  Company Number: AU-PFIZER INC-2008095517

PATIENT

DRUGS (2)
  1. SUTENT [Suspect]
  2. CALCIUM CHANNEL BLOCKERS [Concomitant]

REACTIONS (1)
  - MYOCARDIAL INFARCTION [None]
